FAERS Safety Report 17185949 (Version 2)
Quarter: 2019Q4

REPORT INFORMATION
  Report Type: Report from Study
  Country: US (occurrence: US)
  Receive Date: 20191220
  Receipt Date: 20191231
  Transmission Date: 20200122
  Serious: Yes (Hospitalization)
  Sender: FDA-Public Use
  Company Number: US-PFIZER INC-2019290548

PATIENT
  Age: 67 Year
  Sex: Male

DRUGS (5)
  1. SUTENT [Suspect]
     Active Substance: SUNITINIB MALATE
     Indication: RENAL CELL CARCINOMA
     Dosage: 50 MG, CYCLIC (FOR 28 DAYS, THEN 14 DAYS OFF)
     Route: 048
     Dates: start: 20190603, end: 2019
  2. SUTENT [Suspect]
     Active Substance: SUNITINIB MALATE
     Dosage: 50 MG, CYCLIC (14 DAYS ON,7 DAYS OFF)
     Route: 048
     Dates: start: 20190724, end: 20190813
  3. SUTENT [Suspect]
     Active Substance: SUNITINIB MALATE
     Dosage: 50 MG, CYCLIC, (7 DAYS ON, THEN 7 DAYS OFF)
     Route: 048
     Dates: start: 20190820, end: 2019
  4. SUTENT [Suspect]
     Active Substance: SUNITINIB MALATE
     Dosage: 50 MG, CYCLIC, (7 DAYS ON, THEN 7 DAYS OFF)
     Route: 048
  5. SUTENT [Suspect]
     Active Substance: SUNITINIB MALATE
     Dosage: 40 MG, CYCLIC, (7 DAY ON 7 DAY OFF)
     Route: 048
     Dates: start: 20190606

REACTIONS (16)
  - Taste disorder [Recovering/Resolving]
  - Muscular weakness [Not Recovered/Not Resolved]
  - Nausea [Not Recovered/Not Resolved]
  - Diarrhoea [Unknown]
  - Stomatitis [Not Recovered/Not Resolved]
  - Weight decreased [Not Recovered/Not Resolved]
  - Hyperaesthesia [Unknown]
  - Hypoaesthesia oral [Unknown]
  - Feeling cold [Unknown]
  - Vomiting [Unknown]
  - Back pain [Unknown]
  - Fatigue [Recovering/Resolving]
  - Intestinal obstruction [Unknown]
  - Oral pain [Recovering/Resolving]
  - Decreased appetite [Recovering/Resolving]
  - Blood glucose decreased [Unknown]

NARRATIVE: CASE EVENT DATE: 2019
